FAERS Safety Report 4841253-5 (Version None)
Quarter: 2005Q4

REPORT INFORMATION
  Report Type: 
  Country: None (occurrence: None)
  Receive Date: 20051130
  Receipt Date: 20051118
  Transmission Date: 20060501
  Serious: Yes (Other)
  Sender: FDA-Public Use
  Company Number: PHBS2005KR17080

PATIENT

DRUGS (1)
  1. CLOZARIL [Suspect]
     Route: 048

REACTIONS (3)
  - FATIGUE [None]
  - HEADACHE [None]
  - HYPOTHALAMO-PITUITARY DISORDERS [None]
